FAERS Safety Report 4624254-1 (Version None)
Quarter: 2005Q1

REPORT INFORMATION
  Report Type: 
  Country: None (occurrence: None)
  Receive Date: 20050330
  Receipt Date: 20050330
  Transmission Date: 20050727
  Serious: Yes (Other)
  Sender: FDA-Public Use
  Company Number: None

PATIENT
  Sex: Male
  Weight: 77.3 kg

DRUGS (7)
  1. CAPECITABINE 1800 MG BID X 14 D PT. WAS MIDCYCLE [Suspect]
     Indication: NEOPLASM MALIGNANT
     Dosage: 2 AUC, WEEKLY, IV
     Route: 042
     Dates: start: 20050217
  2. CAPECITABINE 1800 MG BID X 14 D PT. WAS MIDCYCLE [Suspect]
     Indication: NEOPLASM MALIGNANT
     Dosage: 2 AUC, WEEKLY, IV
     Route: 042
     Dates: start: 20050224
  3. CAPECITABINE 1800 MG BID X 14 D PT. WAS MIDCYCLE [Suspect]
     Indication: NEOPLASM MALIGNANT
     Dosage: 2 AUC, WEEKLY, IV
     Route: 042
     Dates: start: 20050303
  4. CAPECITABINE 1800 MG BID X 14 D PT. WAS MIDCYCLE [Suspect]
     Indication: NEOPLASM MALIGNANT
     Dosage: 2 AUC, WEEKLY, IV
     Route: 042
     Dates: start: 20050309
  5. CARBOPLATIN [Suspect]
     Indication: NEOPLASM MALIGNANT
     Dosage: 1800 MG, P.O. BID X 14 D
     Route: 048
     Dates: start: 20050217
  6. CARBOPLATIN [Suspect]
     Indication: NEOPLASM MALIGNANT
     Dosage: 1800 MG, P.O. BID X 14 D
     Route: 048
     Dates: start: 20050310
  7. CARBOPLATIN [Suspect]
     Indication: NEOPLASM MALIGNANT
     Dosage: 1800 MG, P.O. BID X 14 D
     Route: 048
     Dates: start: 20050316

REACTIONS (6)
  - COORDINATION ABNORMAL [None]
  - DRUG INTERACTION [None]
  - DRUG TOXICITY [None]
  - MUSCULAR WEAKNESS [None]
  - NYSTAGMUS [None]
  - POLYNEUROPATHY [None]
